FAERS Safety Report 19632962 (Version 1)
Quarter: 2021Q3

REPORT INFORMATION
  Report Type: Spontaneous
  Country: FR (occurrence: FR)
  Receive Date: 20210730
  Receipt Date: 20210730
  Transmission Date: 20211014
  Serious: Yes (Hospitalization, Other)
  Sender: FDA-Public Use
  Company Number: FR-AUROBINDO-AUR-APL-2021-032262

PATIENT
  Age: 52 Year
  Sex: Male

DRUGS (6)
  1. CHOLECALCIFEROL [Concomitant]
     Active Substance: CHOLECALCIFEROL
     Indication: PRODUCT USED FOR UNKNOWN INDICATION
     Dosage: UNK
     Route: 065
  2. ASPIRINE PROTECT [Concomitant]
     Active Substance: ASPIRIN
     Indication: PRODUCT USED FOR UNKNOWN INDICATION
     Dosage: UNK
     Route: 065
  3. RAMIPRIL. [Concomitant]
     Active Substance: RAMIPRIL
     Indication: PRODUCT USED FOR UNKNOWN INDICATION
     Dosage: UNK
     Route: 065
  4. ATORVASTATIN ACCORD [Suspect]
     Active Substance: ATORVASTATIN
     Indication: HYPOCHOLESTEROLAEMIA
     Dosage: UNK (80 MG IN THE EVENING)
     Route: 048
     Dates: start: 20171115, end: 20201115
  5. EZETIMIBE. [Suspect]
     Active Substance: EZETIMIBE
     Indication: HYPOCHOLESTEROLAEMIA
     Dosage: 80 MILLIGRAM (IN THE EVENING)
     Route: 048
     Dates: start: 20171115, end: 20201115
  6. BISOPROLOL [Concomitant]
     Active Substance: BISOPROLOL
     Indication: PRODUCT USED FOR UNKNOWN INDICATION
     Dosage: UNK
     Route: 065

REACTIONS (2)
  - Myositis [Recovering/Resolving]
  - Rhabdomyolysis [Recovering/Resolving]

NARRATIVE: CASE EVENT DATE: 20201204
